FAERS Safety Report 8835207 (Version 1)
Quarter: 2012Q4

REPORT INFORMATION
  Report Type: Report from Study
  Country: US (occurrence: US)
  Receive Date: 20121011
  Receipt Date: 20121011
  Transmission Date: 20130627
  Serious: Yes (Hospitalization, Other)
  Sender: FDA-Public Use
  Company Number: US-ABBOTT-12P-163-0991243-00

PATIENT
  Age: 66 Year
  Sex: Female

DRUGS (4)
  1. HUMIRA [Suspect]
     Indication: CROHN^S DISEASE
     Dates: start: 2008
  2. AMLODIPINE [Concomitant]
     Indication: PRODUCT USED FOR UNKNOWN INDICATION
     Dosage: Daily
  3. ENALAPRIL [Concomitant]
     Indication: BLOOD PRESSURE
  4. LISINOPRIL [Concomitant]
     Indication: BLOOD PRESSURE
     Dosage: Daily

REACTIONS (10)
  - Hospitalisation [Unknown]
  - Injection site pain [Unknown]
  - Diarrhoea [Unknown]
  - Large intestinal haemorrhage [Unknown]
  - Crohn^s disease [Unknown]
  - Blood cholesterol increased [Unknown]
  - Knee arthroplasty [Recovering/Resolving]
  - Pain [Unknown]
  - Respiratory tract congestion [Unknown]
  - Productive cough [Unknown]
